FAERS Safety Report 8600379-0 (Version None)
Quarter: 2012Q3

REPORT INFORMATION
  Report Type: 
  Country: None (occurrence: None)
  Receive Date: 20120817
  Receipt Date: 20120814
  Transmission Date: 20120928
  Serious: No
  Sender: FDA-Public Use
  Company Number: US-PFIZER INC-2012199458

PATIENT
  Age: 54 Year
  Sex: Female

DRUGS (3)
  1. LIOTHYRONINE SODIUM [Suspect]
     Indication: THYROID HORMONE REPLACEMENT THERAPY
     Dosage: UNK
  2. SYNTHROID [Suspect]
     Indication: THYROID HORMONE REPLACEMENT THERAPY
     Dosage: UNK
  3. XANAX [Suspect]
     Indication: ANXIETY
     Dosage: UNK

REACTIONS (5)
  - FATIGUE [None]
  - DYSPHONIA [None]
  - TREMOR [None]
  - THYROID FUNCTION TEST ABNORMAL [None]
  - OROPHARYNGEAL PAIN [None]
